FAERS Safety Report 24808889 (Version 5)
Quarter: 2025Q2

REPORT INFORMATION
  Report Type: Report from Study
  Country: KR (occurrence: KR)
  Receive Date: 20250106
  Receipt Date: 20250403
  Transmission Date: 20250716
  Serious: Yes (Other)
  Sender: ALEXION PHARMACEUTICALS
  Company Number: KR-AstraZeneca-2024A207342

PATIENT
  Age: 69 Year
  Weight: 48 kg

DRUGS (30)
  1. OLAPARIB [Suspect]
     Active Substance: OLAPARIB
     Indication: Ovarian cancer
     Dosage: 300 MILLIGRAM, BID
  2. OLAPARIB [Suspect]
     Active Substance: OLAPARIB
     Dosage: 250 MILLIGRAM, BID
  3. OLAPARIB [Suspect]
     Active Substance: OLAPARIB
     Dosage: 150 MILLIGRAM, BID
  4. OLAPARIB [Suspect]
     Active Substance: OLAPARIB
  5. CILOSTAZOL [Concomitant]
     Active Substance: CILOSTAZOL
     Indication: Cerebral artery stenosis
  6. ULTRACET [Concomitant]
     Active Substance: ACETAMINOPHEN\TRAMADOL HYDROCHLORIDE
     Indication: Urinary tract infection
  7. LAFUTIDINE [Concomitant]
     Active Substance: LAFUTIDINE
     Indication: Chronic gastritis
  8. MAGNESIUM OXIDE [Concomitant]
     Active Substance: MAGNESIUM OXIDE
     Indication: Urinary tract infection
     Route: 065
  9. FERROUS SULFATE\PROTEASE [Concomitant]
     Active Substance: FERROUS SULFATE\PROTEASE
     Indication: Thrombocytopenia
  10. LYRICA [Concomitant]
     Active Substance: PREGABALIN
     Indication: Transient ischaemic attack
  11. LIPITOR [Concomitant]
     Active Substance: ATORVASTATIN CALCIUM
     Indication: Cerebral artery stenosis
  12. Clopidogrel daewon [Concomitant]
     Indication: Transient ischaemic attack
     Route: 065
  13. CEFTRIAXONE [Concomitant]
     Active Substance: CEFTRIAXONE
     Indication: Urinary tract infection
     Route: 065
  14. DOXYCYCLINE [Concomitant]
     Active Substance: DOXYCYCLINE
     Indication: Urinary tract infection
     Route: 065
  15. FERINJECT [Concomitant]
     Active Substance: FERRIC CARBOXYMALTOSE
     Indication: Thrombocytopenia
     Route: 065
  16. Paceta [Concomitant]
     Indication: Urinary tract infection
     Route: 065
  17. Paceta [Concomitant]
     Indication: Pyelonephritis acute
     Route: 065
  18. Tazoperan [Concomitant]
     Indication: Urinary tract infection
     Route: 065
  19. METOCLOPRAMIDE HYDROCHLORIDE [Concomitant]
     Active Substance: METOCLOPRAMIDE HYDROCHLORIDE
     Indication: Prophylaxis
     Route: 065
  20. PANTOPRAZOLE SODIUM [Concomitant]
     Active Substance: PANTOPRAZOLE SODIUM
     Indication: Chronic gastritis
     Route: 065
  21. ENOXAPARIN SODIUM [Concomitant]
     Active Substance: ENOXAPARIN SODIUM
     Indication: Endocarditis
     Route: 065
  22. Ubactam [Concomitant]
     Indication: Endocarditis
     Route: 065
  23. CALCIUM CARBONATE [Concomitant]
     Active Substance: CALCIUM CARBONATE
     Indication: Chronic gastritis
     Route: 065
  24. ATORVASTATIN CALCIUM [Concomitant]
     Active Substance: ATORVASTATIN CALCIUM
     Indication: Cerebral artery stenosis
     Route: 065
  25. MEROPENEM [Concomitant]
     Active Substance: MEROPENEM
     Indication: Endocarditis
     Route: 065
  26. LASIX [Concomitant]
     Active Substance: FUROSEMIDE
     Indication: Pyelonephritis acute
     Route: 065
  27. Tapocin [Concomitant]
     Indication: Endocarditis
     Route: 065
  28. CARVEDILOL [Concomitant]
     Active Substance: CARVEDILOL
     Indication: Hypertension
     Route: 065
  29. Binicapin [Concomitant]
     Indication: Hypertension
     Route: 065
  30. Sk albumin [Concomitant]
     Indication: Pancytopenia
     Route: 065

REACTIONS (2)
  - Thrombocytopenia [Recovering/Resolving]
  - Anaemia [Recovered/Resolved]
